FAERS Safety Report 18503636 (Version 1)
Quarter: 2020Q4

REPORT INFORMATION
  Report Type: Spontaneous
  Country: US (occurrence: US)
  Receive Date: 20201113
  Receipt Date: 20201113
  Transmission Date: 20210114
  Serious: Yes (Hospitalization, Other)
  Sender: FDA-Public Use
  Company Number: US-ASTRAZENECA-2020SF48504

PATIENT
  Sex: Female
  Weight: 75.3 kg

DRUGS (5)
  1. BYDUREON BCISE [Suspect]
     Active Substance: EXENATIDE
     Indication: BLOOD GLUCOSE ABNORMAL
     Route: 058
  2. ATORVASTATIN [Concomitant]
     Active Substance: ATORVASTATIN
  3. PROBIOTIC [Concomitant]
     Active Substance: PROBIOTICS NOS
  4. FUROSEMIDE. [Concomitant]
     Active Substance: FUROSEMIDE
  5. HYDROCHLOROTHIAZIDE. [Concomitant]
     Active Substance: HYDROCHLOROTHIAZIDE

REACTIONS (10)
  - Speech disorder [Unknown]
  - Dyspnoea [Unknown]
  - Amnesia [Unknown]
  - Movement disorder [Unknown]
  - Gait inability [Unknown]
  - Eye disorder [Unknown]
  - Dyspepsia [Unknown]
  - Cardiac arrest [Unknown]
  - Injection site mass [Unknown]
  - Device leakage [Unknown]
